FAERS Safety Report 24321870 (Version 1)
Quarter: 2024Q3

REPORT INFORMATION
  Report Type: Report from Study
  Country: CA (occurrence: CA)
  Receive Date: 20240916
  Receipt Date: 20240916
  Transmission Date: 20241016
  Serious: Yes (Hospitalization)
  Sender: ABBVIE
  Company Number: CA-ABBVIE-5921854

PATIENT
  Sex: Female

DRUGS (1)
  1. RINVOQ [Suspect]
     Active Substance: UPADACITINIB
     Indication: Rheumatoid arthritis
     Route: 048
     Dates: start: 20201119

REACTIONS (2)
  - Orthopaedic procedure [Not Recovered/Not Resolved]
  - Neck surgery [Not Recovered/Not Resolved]

NARRATIVE: CASE EVENT DATE: 20240901
